FAERS Safety Report 6286448-1 (Version None)
Quarter: 2009Q3

REPORT INFORMATION
  Report Type: 
  Country: None (occurrence: None)
  Receive Date: 20090728
  Receipt Date: 20090720
  Transmission Date: 20100115
  Serious: Yes (Hospitalization, Disabling)
  Sender: FDA-Public Use
  Company Number: A0798445A

PATIENT
  Age: 14 Year
  Sex: Female

DRUGS (2)
  1. TREXIMET [Suspect]
     Indication: DRUG USE FOR UNKNOWN INDICATION
     Route: 065
     Dates: start: 20081201
  2. UNKNOWN [Concomitant]

REACTIONS (3)
  - ABASIA [None]
  - BEDRIDDEN [None]
  - PARALYSIS [None]
